FAERS Safety Report 10408508 (Version 1)
Quarter: 2014Q3

REPORT INFORMATION
  Report Type: Spontaneous
  Country: CA (occurrence: None)
  Receive Date: 20140822
  Receipt Date: 20140822
  Transmission Date: 20150326
  Serious: No
  Sender: FDA-Public Use
  Company Number: None

PATIENT
  Age: 28 Year
  Sex: Female
  Weight: 95.26 kg

DRUGS (1)
  1. EFFEXOR GENERIC [Suspect]
     Active Substance: VENLAFAXINE HYDROCHLORIDE
     Indication: DEPRESSION
     Dosage: EFFEXOR GENERIC ONCE DAILY TAKEN BY MOUTH
     Route: 048
     Dates: start: 20140201, end: 20140818

REACTIONS (11)
  - Product substitution issue [None]
  - Economic problem [None]
  - Impaired work ability [None]
  - Depression [None]
  - Drug ineffective [None]
  - Emotional disorder [None]
  - Condition aggravated [None]
  - Withdrawal syndrome [None]
  - Product solubility abnormal [None]
  - Activities of daily living impaired [None]
  - Malaise [None]

NARRATIVE: CASE EVENT DATE: 20140814
